FAERS Safety Report 10018976 (Version 2)
Quarter: 2014Q2

REPORT INFORMATION
  Report Type: Spontaneous
  Country: US (occurrence: US)
  Receive Date: 20140318
  Receipt Date: 20140620
  Transmission Date: 20141212
  Serious: Yes (Hospitalization)
  Sender: FDA-Public Use
  Company Number: US-BAYER-2014-040991

PATIENT
  Age: 17 Year
  Sex: Female
  Weight: 60.77 kg

DRUGS (3)
  1. MIRENA [Suspect]
     Indication: CONTRACEPTION
     Dosage: 20 MCG/24HR, CONT
     Route: 015
     Dates: start: 20110719, end: 20120323
  2. MIRENA [Suspect]
     Indication: CONTRACEPTION
     Dosage: 20 MCG/24HR, CONT
     Dates: start: 20090901, end: 20100301
  3. ADDERALL [Concomitant]
     Indication: ATTENTION DEFICIT/HYPERACTIVITY DISORDER
     Dosage: UNK
     Dates: start: 200701

REACTIONS (11)
  - Embedded device [None]
  - Injury [None]
  - Pain [None]
  - Procedural pain [None]
  - Emotional distress [None]
  - Scar [None]
  - Uterine pain [None]
  - Dyspareunia [None]
  - Depression [None]
  - Anxiety [None]
  - Menorrhagia [None]
